FAERS Safety Report 10800303 (Version 1)
Quarter: 2015Q1

REPORT INFORMATION
  Report Type: Spontaneous
  Country: US (occurrence: US)
  Receive Date: 20150216
  Receipt Date: 20150216
  Transmission Date: 20150721
  Serious: No
  Sender: FDA-Public Use
  Company Number: US-ALLERGAN-1415125US

PATIENT

DRUGS (1)
  1. RESTASIS [Suspect]
     Active Substance: CYCLOSPORINE
     Indication: PRODUCT USED FOR UNKNOWN INDICATION
     Route: 047

REACTIONS (6)
  - Drug ineffective [Unknown]
  - Eye pruritus [Unknown]
  - Rhinorrhoea [Unknown]
  - Eye irritation [Unknown]
  - Vision blurred [Unknown]
  - Ocular hyperaemia [Unknown]
